FAERS Safety Report 25780188 (Version 1)
Quarter: 2025Q3

REPORT INFORMATION
  Report Type: Spontaneous
  Country: US (occurrence: US)
  Receive Date: 20250909
  Receipt Date: 20250909
  Transmission Date: 20251021
  Serious: No
  Sender: SERVIER
  Company Number: US-SERVIER-S25011634

PATIENT

DRUGS (6)
  1. VORANIGO [Suspect]
     Active Substance: VORASIDENIB
     Indication: Oligodendroglioma
     Dosage: 40 MG, QD
     Route: 048
  2. VORANIGO [Suspect]
     Active Substance: VORASIDENIB
     Dosage: 20 MG, QD
     Route: 048
  3. KEPPRA [Concomitant]
     Active Substance: LEVETIRACETAM
     Indication: Seizure
     Dosage: 1750 MG, QD
     Route: 048
  4. ADDERALL [Concomitant]
     Active Substance: AMPHETAMINE ASPARTATE\AMPHETAMINE SULFATE\DEXTROAMPHETAMINE SACCHARATE\DEXTROAMPHETAMINE SULFATE
     Indication: Fatigue
     Route: 065
  5. RITALIN [Concomitant]
     Active Substance: METHYLPHENIDATE HYDROCHLORIDE
     Indication: Fatigue
     Route: 065
  6. MAGNESIUM [Concomitant]
     Active Substance: MAGNESIUM
     Indication: Restless legs syndrome
     Dosage: UNK, QD
     Route: 065

REACTIONS (2)
  - Hepatic enzyme increased [Recovered/Resolved]
  - Fatigue [Recovering/Resolving]
